FAERS Safety Report 5763685-3 (Version None)
Quarter: 2008Q2

REPORT INFORMATION
  Report Type: 
  Country: None (occurrence: None)
  Receive Date: 20080610
  Receipt Date: 20080604
  Transmission Date: 20081010
  Serious: Yes (Other)
  Sender: FDA-Public Use
  Company Number: US-RANBAXY-2008RR-15389

PATIENT

DRUGS (1)
  1. SIMVASTATIN [Suspect]
     Indication: HYPERLIPIDAEMIA
     Dosage: 20 MG, QD

REACTIONS (6)
  - ASTHENIA [None]
  - DIARRHOEA [None]
  - DRUG TOXICITY [None]
  - HYPOGLYCAEMIA [None]
  - LETHARGY [None]
  - ORAL INTAKE REDUCED [None]
